FAERS Safety Report 15282738 (Version 2)
Quarter: 2018Q3

REPORT INFORMATION
  Report Type: Report from Study
  Country: US (occurrence: US)
  Receive Date: 20180816
  Receipt Date: 20180912
  Transmission Date: 20181010
  Serious: No
  Sender: FDA-Public Use
  Company Number: US-009507513-1808USA002124

PATIENT
  Age: 29 Year
  Sex: Female
  Weight: 57.14 kg

DRUGS (1)
  1. IMPLANON [Suspect]
     Active Substance: ETONOGESTREL
     Indication: CONTRACEPTION
     Dosage: ONE 3 YEAR IMPLANT
     Route: 059
     Dates: start: 20151006, end: 20180817

REACTIONS (10)
  - Muscle spasms [Not Recovered/Not Resolved]
  - Tremor [Not Recovered/Not Resolved]
  - Implant site fibrosis [Unknown]
  - Implant site pain [Not Recovered/Not Resolved]
  - Implant site pruritus [Unknown]
  - Raynaud^s phenomenon [Unknown]
  - Injection site discomfort [Not Recovered/Not Resolved]
  - Headache [Unknown]
  - Incision site pain [Unknown]
  - Complication of device removal [Recovered/Resolved]

NARRATIVE: CASE EVENT DATE: 2015
